FAERS Safety Report 16739564 (Version 1)
Quarter: 2019Q3

REPORT INFORMATION
  Report Type: Spontaneous
  Country: IT (occurrence: IT)
  Receive Date: 20190826
  Receipt Date: 20190826
  Transmission Date: 20191005
  Serious: Yes (Hospitalization)
  Sender: FDA-Public Use
  Company Number: IT-SUN PHARMACEUTICAL INDUSTRIES LTD-2019RR-218734

PATIENT
  Age: 44 Year
  Sex: Female

DRUGS (9)
  1. OLANZAPINE. [Suspect]
     Active Substance: OLANZAPINE
     Indication: AFFECTIVE DISORDER
     Dosage: 5 MILLIGRAM, DAILY
     Route: 048
     Dates: start: 20190603, end: 20190616
  2. BIPERIDEN HYDROCHLORIDE [Suspect]
     Active Substance: BIPERIDEN HYDROCHLORIDE
     Indication: TREMOR
     Dosage: 4 MILLIGRAM, DAILY
     Route: 048
     Dates: start: 20190609, end: 20190616
  3. LORAZEPAM. [Concomitant]
     Active Substance: LORAZEPAM
     Indication: AFFECTIVE DISORDER
     Dosage: 2 MILLIGRAM, UNK
     Route: 048
     Dates: start: 20190609
  4. GABAPENTIN. [Concomitant]
     Active Substance: GABAPENTIN
     Indication: TREMOR
     Dosage: 1200 MILLIGRAM, UNK
     Route: 048
     Dates: start: 20190603
  5. CLOTIAPINE [Suspect]
     Active Substance: CLOTHIAPINE
     Indication: AFFECTIVE DISORDER
     Dosage: 10 GTT, DAILY
     Route: 048
     Dates: start: 20190603, end: 20190616
  6. CITALOPRAM [Suspect]
     Active Substance: CITALOPRAM HYDROBROMIDE
     Indication: DEPRESSION
     Dosage: 20 MILLIGRAM, DAILY
     Route: 048
     Dates: start: 20190603, end: 20190616
  7. LITHIUM CARBONATE. [Concomitant]
     Active Substance: LITHIUM CARBONATE
     Indication: AFFECTIVE DISORDER
     Dosage: 450 MILLIGRAM, UNK
     Route: 048
     Dates: start: 20190603
  8. SODIO VALPROATO/ACIDO VALPROICO [Suspect]
     Active Substance: VALPROATE SODIUM
     Indication: TREMOR
     Dosage: 100 MILLIGRAM, DAILY
     Route: 048
     Dates: start: 20190603, end: 20190616
  9. CIRCADIN 2 MG PROLONGED-RELEASE TABLETS [Concomitant]
     Active Substance: MELATONIN
     Indication: INSOMNIA
     Dosage: 2 MILLIGRAM, UNK
     Route: 048
     Dates: start: 20190603

REACTIONS (5)
  - Hypertransaminasaemia [Recovering/Resolving]
  - Drug interaction [Recovering/Resolving]
  - Generalised erythema [Recovering/Resolving]
  - Rash [Recovering/Resolving]
  - Pruritus [Recovering/Resolving]

NARRATIVE: CASE EVENT DATE: 20190616
